FAERS Safety Report 4801509-9 (Version None)
Quarter: 2005Q4

REPORT INFORMATION
  Report Type: 
  Country: None (occurrence: None)
  Receive Date: 20051011
  Receipt Date: 20050928
  Transmission Date: 20060501
  Serious: Yes (Hospitalization, Other)
  Sender: FDA-Public Use
  Company Number: 2005135272

PATIENT
  Age: 69 Year
  Sex: Female
  Weight: 86.1834 kg

DRUGS (13)
  1. ATARAX [Suspect]
     Indication: PRURITUS
     Dosage: 25 MG (AS NEEDED)
  2. MOTRIN [Suspect]
     Indication: ILL-DEFINED DISORDER
  3. HYDROXYZINE [Suspect]
     Indication: PRURITUS
     Dosage: 25 MG
     Dates: start: 20050901, end: 20050901
  4. DARVOCET [Concomitant]
  5. PROTONIX [Concomitant]
  6. PLAVIX [Concomitant]
  7. VALIUM [Concomitant]
  8. LIPITOR [Concomitant]
  9. ZETIA [Concomitant]
  10. VANCENASE [Concomitant]
  11. LACTULOSE [Concomitant]
  12. TYLENOL [Concomitant]
  13. DITROPAN XL (OXYBUTYNIN HYROCHLORIDE) [Concomitant]

REACTIONS (8)
  - CONDITION AGGRAVATED [None]
  - DRUG EFFECT DECREASED [None]
  - DRUG HYPERSENSITIVITY [None]
  - DRUG INEFFECTIVE [None]
  - NEOPLASM MALIGNANT [None]
  - PANIC DISORDER [None]
  - PHARMACEUTICAL PRODUCT COMPLAINT [None]
  - PRURITUS [None]
